FAERS Safety Report 11693186 (Version 1)
Quarter: 2015Q4

REPORT INFORMATION
  Report Type: Spontaneous
  Country: US (occurrence: None)
  Receive Date: 20151102
  Receipt Date: 20151102
  Transmission Date: 20160304
  Serious: No
  Sender: FDA-Public Use
  Company Number: None

PATIENT
  Age: 24 Year
  Sex: Female
  Weight: 71.22 kg

DRUGS (1)
  1. LO LOESTRIN FE [Suspect]
     Active Substance: ETHINYL ESTRADIOL\NORETHINDRONE ACETATE
     Indication: MENSTRUAL CYCLE MANAGEMENT
     Dosage: 1 PILL
     Route: 048

REACTIONS (4)
  - Rash erythematous [None]
  - Rash pruritic [None]
  - Skin irritation [None]
  - Rash [None]

NARRATIVE: CASE EVENT DATE: 20150918
